FAERS Safety Report 8378881-9 (Version None)
Quarter: 2012Q2

REPORT INFORMATION
  Report Type: 
  Country: None (occurrence: None)
  Receive Date: 20120522
  Receipt Date: 20120522
  Transmission Date: 20120825
  Serious: Yes (Hospitalization)
  Sender: FDA-Public Use
  Company Number: None

PATIENT
  Sex: Female
  Weight: 96.1 kg

DRUGS (1)
  1. CISPLATIN [Suspect]
     Dosage: 200 MG

REACTIONS (13)
  - NEUTROPENIA [None]
  - INTERNATIONAL NORMALISED RATIO INCREASED [None]
  - DYSPNOEA [None]
  - HEAD DISCOMFORT [None]
  - REFUSAL OF TREATMENT BY PATIENT [None]
  - PAIN [None]
  - ACUTE PRERENAL FAILURE [None]
  - DEHYDRATION [None]
  - HYPOVOLAEMIA [None]
  - MUSCULOSKELETAL DISCOMFORT [None]
  - THROMBOPHLEBITIS SUPERFICIAL [None]
  - TACHYCARDIA [None]
  - MALNUTRITION [None]
